FAERS Safety Report 4342609-X (Version None)
Quarter: 2004Q2

REPORT INFORMATION
  Report Type: 
  Country: None (occurrence: None)
  Receive Date: 20040421
  Receipt Date: 20040409
  Transmission Date: 20050107
  Serious: Yes (Death, Hospitalization, Other)
  Sender: FDA-Public Use
  Company Number: US-JNJFOC-20040306732

PATIENT
  Sex: Female

DRUGS (1)
  1. DURAGESIC [Suspect]
     Indication: PAIN
     Route: 062
     Dates: start: 20040218, end: 20040218

REACTIONS (9)
  - DIALYSIS [None]
  - DRUG EFFECT DECREASED [None]
  - GASTROINTESTINAL HAEMORRHAGE [None]
  - HYPERVOLAEMIA [None]
  - LETHARGY [None]
  - NAUSEA [None]
  - RESPIRATORY FAILURE [None]
  - SOMNOLENCE [None]
  - VOMITING [None]
